FAERS Safety Report 15903641 (Version 1)
Quarter: 2019Q1

REPORT INFORMATION
  Report Type: Spontaneous
  Country: SE (occurrence: SE)
  Receive Date: 20190203
  Receipt Date: 20190203
  Transmission Date: 20190417
  Serious: Yes (Other)
  Sender: FDA-Public Use
  Company Number: SE-ACCORD-105027

PATIENT
  Age: 81 Year
  Sex: Female

DRUGS (24)
  1. MONTELUKAST [Concomitant]
     Active Substance: MONTELUKAST SODIUM
  2. FLUDEN [Concomitant]
  3. KALCIPOS [Concomitant]
     Active Substance: CALCIUM CARBONATE
  4. CETIRIZINE [Concomitant]
     Active Substance: CETIRIZINE HYDROCHLORIDE
  5. LOSARTAN. [Concomitant]
     Active Substance: LOSARTAN
  6. OESTRING [Concomitant]
     Active Substance: ESTRADIOL
  7. METFORMIN [Concomitant]
     Active Substance: METFORMIN HYDROCHLORIDE
  8. DIMOR [Concomitant]
     Active Substance: LOPERAMIDE
  9. BETNOVAT [Concomitant]
     Active Substance: BETAMETHASONE
  10. AMLODIPINE [Suspect]
     Active Substance: AMLODIPINE BESYLATE
     Indication: PRODUCT USED FOR UNKNOWN INDICATION
  11. PROPYDERM [Concomitant]
  12. ALVEDON [Concomitant]
     Active Substance: ACETAMINOPHEN
  13. CORTIKMYK [Concomitant]
  14. BRICANYL [Concomitant]
     Active Substance: TERBUTALINE SULFATE
  15. ATENOLOL/ATENOLOL HYDROCHLORIDE [Concomitant]
  16. SYMBICORT [Concomitant]
     Active Substance: BUDESONIDE\FORMOTEROL FUMARATE DIHYDRATE
  17. INSUMAN [Concomitant]
     Active Substance: INSULIN HUMAN
  18. OMEPRAZOLE. [Concomitant]
     Active Substance: OMEPRAZOLE
  19. IDOTRIM [Suspect]
     Active Substance: TRIMETHOPRIM
     Indication: URINARY TRACT INFECTION
     Dates: end: 201803
  20. NOVORAPID [Concomitant]
     Active Substance: INSULIN ASPART
  21. ZOLPIDEM/ZOLPIDEM TARTRATE [Concomitant]
  22. KETOCONAZOLE. [Concomitant]
     Active Substance: KETOCONAZOLE
  23. FURIX RETARD [Concomitant]
     Active Substance: FUROSEMIDE
  24. TRADOLAN [Concomitant]
     Active Substance: TRAMADOL

REACTIONS (1)
  - Urticaria [Recovering/Resolving]

NARRATIVE: CASE EVENT DATE: 201803
